FAERS Safety Report 24386164 (Version 1)
Quarter: 2024Q4

REPORT INFORMATION
  Report Type: Spontaneous
  Country: FR (occurrence: FR)
  Receive Date: 20241001
  Receipt Date: 20241001
  Transmission Date: 20250114
  Serious: Yes (Other)
  Sender: ALEXION PHARMACEUTICALS
  Company Number: FR-ALXN-202409GLO005255FR

PATIENT
  Age: 24 Year

DRUGS (38)
  1. SOLIRIS [Suspect]
     Active Substance: ECULIZUMAB
     Indication: Paroxysmal nocturnal haemoglobinuria
     Dosage: 1800 MILLIGRAM, QW (900 MG, QW2)
  2. SOLIRIS [Suspect]
     Active Substance: ECULIZUMAB
     Dosage: 1800 MILLIGRAM, QW (900 MG, QW2)
  3. SOLIRIS [Suspect]
     Active Substance: ECULIZUMAB
     Dosage: 1800 MILLIGRAM, QW (900 MG, QW2)
  4. SOLIRIS [Suspect]
     Active Substance: ECULIZUMAB
     Dosage: 1800 MILLIGRAM, QW (900 MG, QW2)
  5. SOLIRIS [Suspect]
     Active Substance: ECULIZUMAB
     Dosage: UNK
  6. SOLIRIS [Suspect]
     Active Substance: ECULIZUMAB
     Dosage: UNK
  7. SOLIRIS [Suspect]
     Active Substance: ECULIZUMAB
     Dosage: UNK
  8. SOLIRIS [Suspect]
     Active Substance: ECULIZUMAB
     Dosage: UNK
  9. NEORAL [Suspect]
     Active Substance: CYCLOSPORINE
     Indication: Paroxysmal nocturnal haemoglobinuria
     Dosage: 150 MILLIGRAM
  10. NEORAL [Suspect]
     Active Substance: CYCLOSPORINE
     Dosage: 150 MILLIGRAM
     Route: 065
  11. NEORAL [Suspect]
     Active Substance: CYCLOSPORINE
     Dosage: 150 MILLIGRAM
     Route: 065
  12. NEORAL [Suspect]
     Active Substance: CYCLOSPORINE
     Dosage: 150 MILLIGRAM
  13. NEORAL [Suspect]
     Active Substance: CYCLOSPORINE
     Dosage: 200 MILLIGRAM, QD (100 MG, BID)
     Route: 065
  14. NEORAL [Suspect]
     Active Substance: CYCLOSPORINE
     Dosage: 200 MILLIGRAM, QD (100 MG, BID)
  15. NEORAL [Suspect]
     Active Substance: CYCLOSPORINE
     Dosage: 200 MILLIGRAM, QD (100 MG, BID)
     Route: 065
  16. NEORAL [Suspect]
     Active Substance: CYCLOSPORINE
     Dosage: 200 MILLIGRAM, QD (100 MG, BID)
  17. NEORAL [Suspect]
     Active Substance: CYCLOSPORINE
     Dosage: 175 MILLIGRAM
     Route: 065
  18. NEORAL [Suspect]
     Active Substance: CYCLOSPORINE
     Dosage: 175 MILLIGRAM
     Route: 065
  19. NEORAL [Suspect]
     Active Substance: CYCLOSPORINE
     Dosage: 175 MILLIGRAM
  20. NEORAL [Suspect]
     Active Substance: CYCLOSPORINE
     Dosage: 175 MILLIGRAM
  21. NEORAL [Suspect]
     Active Substance: CYCLOSPORINE
     Dosage: 125 MILLIGRAM
     Route: 065
  22. NEORAL [Suspect]
     Active Substance: CYCLOSPORINE
     Dosage: 125 MILLIGRAM
  23. NEORAL [Suspect]
     Active Substance: CYCLOSPORINE
     Dosage: 125 MILLIGRAM
     Route: 065
  24. NEORAL [Suspect]
     Active Substance: CYCLOSPORINE
     Dosage: 125 MILLIGRAM
  25. EPOETIN BETA [Concomitant]
     Active Substance: ERYTHROPOIETIN
     Dosage: 3000 INTERNATIONAL UNIT, QW
  26. EPOETIN BETA [Concomitant]
     Active Substance: ERYTHROPOIETIN
     Dosage: 3000 INTERNATIONAL UNIT, QW
  27. Previscan [Concomitant]
     Dosage: UNK
  28. Previscan [Concomitant]
     Dosage: UNK
  29. Previscan [Concomitant]
     Dosage: UNK
  30. Previscan [Concomitant]
     Dosage: UNK
  31. SERETIDE [Concomitant]
     Active Substance: FLUTICASONE PROPIONATE\SALMETEROL XINAFOATE
     Dosage: UNK
  32. SERETIDE [Concomitant]
     Active Substance: FLUTICASONE PROPIONATE\SALMETEROL XINAFOATE
     Dosage: UNK
  33. INIPOMP [Concomitant]
     Active Substance: PANTOPRAZOLE SODIUM
     Dosage: 20 MILLIGRAM, QD
  34. INIPOMP [Concomitant]
     Active Substance: PANTOPRAZOLE SODIUM
     Dosage: 20 MILLIGRAM, QD
  35. INIPOMP [Concomitant]
     Active Substance: PANTOPRAZOLE SODIUM
     Dosage: 20 MILLIGRAM, QD
  36. INIPOMP [Concomitant]
     Active Substance: PANTOPRAZOLE SODIUM
     Dosage: 20 MILLIGRAM, QD
  37. FOLIC ACID [Concomitant]
     Active Substance: FOLIC ACID
     Dosage: UNK
  38. FOLIC ACID [Concomitant]
     Active Substance: FOLIC ACID
     Dosage: UNK
     Route: 065

REACTIONS (3)
  - Breast pain [Unknown]
  - Breast cyst [Not Recovered/Not Resolved]
  - Fibroadenoma of breast [Not Recovered/Not Resolved]
